FAERS Safety Report 11458133 (Version 1)
Quarter: 2015Q3

REPORT INFORMATION
  Report Type: Spontaneous
  Country: US (occurrence: US)
  Receive Date: 20150904
  Receipt Date: 20150904
  Transmission Date: 20151125
  Serious: No
  Sender: FDA-Public Use
  Company Number: US-BAYER-2015-414150

PATIENT
  Age: 83 Year
  Sex: Female
  Weight: 51.7 kg

DRUGS (3)
  1. AMBIEN [Concomitant]
     Active Substance: ZOLPIDEM TARTRATE
     Dosage: UNK
  2. MIRALAX [Suspect]
     Active Substance: POLYETHYLENE GLYCOL 3350
     Indication: CONSTIPATION
     Dosage: UNK DF, BID
     Route: 048
  3. MIRALAX [Suspect]
     Active Substance: POLYETHYLENE GLYCOL 3350
     Indication: CONSTIPATION
     Dosage: 1 DF 3 TIMES A DAY, PRN
     Route: 048

REACTIONS (3)
  - Muscle spasms [Unknown]
  - Abdominal distension [Unknown]
  - Product use issue [Unknown]

NARRATIVE: CASE EVENT DATE: 2013
